FAERS Safety Report 4597536-X (Version None)
Quarter: 2005Q1

REPORT INFORMATION
  Report Type: 
  Country: None (occurrence: None)
  Receive Date: 20050303
  Receipt Date: 20041223
  Transmission Date: 20050727
  Serious: Yes (Other)
  Sender: FDA-Public Use
  Company Number: PHFR2004GB04682

PATIENT
  Age: 33 Year
  Sex: Male

DRUGS (2)
  1. CLOZARIL [Suspect]
     Indication: SCHIZOPHRENIA
     Route: 048
     Dates: start: 20041021
  2. CLOZARIL [Suspect]
     Dosage: 400MG/DAY
     Route: 048

REACTIONS (3)
  - DIABETES MELLITUS [None]
  - VENTRICULAR HYPERTROPHY [None]
  - WEIGHT INCREASED [None]
